FAERS Safety Report 5575526-8 (Version None)
Quarter: 2007Q4

REPORT INFORMATION
  Report Type: 
  Country: None (occurrence: None)
  Receive Date: 20071226
  Receipt Date: 20071213
  Transmission Date: 20080405
  Serious: Yes (Other)
  Sender: FDA-Public Use
  Company Number: 021714

PATIENT
  Age: 2 Year
  Sex: Male

DRUGS (3)
  1. CLARAVIS [Suspect]
     Indication: BRAIN NEOPLASM MALIGNANT
     Dosage: 20 MG, BID, ORAL
     Route: 048
     Dates: start: 20071015, end: 20071101
  2. CLARAVIS [Suspect]
     Indication: OFF LABEL USE
     Dosage: 20 MG, BID, ORAL
     Route: 048
     Dates: start: 20071015, end: 20071101
  3. TEMODAR [Concomitant]

REACTIONS (3)
  - BRAIN NEOPLASM [None]
  - NEOPLASM PROGRESSION [None]
  - REFUSAL OF TREATMENT BY RELATIVE [None]
